FAERS Safety Report 10777564 (Version 2)
Quarter: 2022Q3

REPORT INFORMATION
  Report Type: Spontaneous
  Country: FR (occurrence: FR)
  Receive Date: 20150209
  Receipt Date: 20220913
  Transmission Date: 20221026
  Serious: Yes (Hospitalization, Other)
  Sender: FDA-Public Use
  Company Number: FR-SA-2015SA006157

PATIENT
  Age: 9 Year
  Sex: Female

DRUGS (8)
  1. AMOXICILLIN\CLAVULANIC ACID [Suspect]
     Active Substance: AMOXICILLIN\CLAVULANIC ACID
     Indication: Staphylococcal abscess
     Dosage: UNK UNK,UNK
     Route: 065
     Dates: start: 2012
  2. AMOXICILLIN\CLAVULANIC ACID [Suspect]
     Active Substance: AMOXICILLIN\CLAVULANIC ACID
     Dosage: UNK UNK,UNK
     Route: 048
     Dates: start: 2012
  3. OXACILLIN SODIUM [Suspect]
     Active Substance: OXACILLIN SODIUM
     Indication: Staphylococcal abscess
     Dosage: UNK UNK,UNK
     Route: 065
     Dates: start: 2012
  4. CLINDAMYCIN PHOSPHATE [Suspect]
     Active Substance: CLINDAMYCIN PHOSPHATE
     Indication: Staphylococcal abscess
     Dosage: UNK UNK,UNK
     Route: 065
     Dates: start: 2012
  5. COLCHICINE [Suspect]
     Active Substance: COLCHICINE
     Indication: Pericarditis
     Dosage: UNK UNK,UNK
     Route: 065
     Dates: start: 2012
  6. COLCHICINE [Suspect]
     Active Substance: COLCHICINE
     Indication: Staphylococcal abscess
  7. AMIKACIN [Suspect]
     Active Substance: AMIKACIN
     Indication: Staphylococcal abscess
     Dosage: UNK
  8. RIFAMPIN [Suspect]
     Active Substance: RIFAMPIN
     Indication: Staphylococcal abscess
     Dosage: UNK UNK,UNK
     Route: 048
     Dates: start: 2012

REACTIONS (16)
  - Drug reaction with eosinophilia and systemic symptoms [Recovered/Resolved]
  - Pyrexia [Recovered/Resolved]
  - Rash [Recovered/Resolved]
  - Hepatic cytolysis [Recovered/Resolved]
  - Eosinophilia [Recovered/Resolved]
  - Malaise [Recovered/Resolved]
  - Rash [Recovered/Resolved]
  - Heart rate increased [Recovered/Resolved]
  - Asthenia [Recovered/Resolved]
  - Rash maculo-papular [Recovered/Resolved]
  - Face oedema [Recovered/Resolved]
  - Cheilitis [Recovered/Resolved]
  - Lymphadenopathy [Recovered/Resolved]
  - Pruritus [Recovered/Resolved]
  - Eyelid oedema [Recovered/Resolved]
  - Product use in unapproved indication [Unknown]

NARRATIVE: CASE EVENT DATE: 20120101
